FAERS Safety Report 16801657 (Version 2)
Quarter: 2019Q3

REPORT INFORMATION
  Report Type: Spontaneous
  Country: US (occurrence: US)
  Receive Date: 20190912
  Receipt Date: 20190930
  Transmission Date: 20191005
  Serious: No
  Sender: FDA-Public Use
  Company Number: US-PFIZER INC-2019390838

PATIENT
  Age: 74 Year
  Sex: Female
  Weight: 72.56 kg

DRUGS (3)
  1. PREMARIN [Suspect]
     Active Substance: ESTROGENS, CONJUGATED
     Dosage: 0.625 MG, 1X/DAY
     Dates: start: 2000, end: 20190906
  2. PREMARIN [Suspect]
     Active Substance: ESTROGENS, CONJUGATED
     Indication: HORMONE REPLACEMENT THERAPY
     Dosage: 0.625 MG, 1X/DAY
     Dates: start: 1990, end: 20190908
  3. PREMARIN [Suspect]
     Active Substance: ESTROGENS, CONJUGATED
     Dosage: 0.625 MG, UNK
     Dates: start: 2001

REACTIONS (7)
  - Drug ineffective [Unknown]
  - Dry mouth [Unknown]
  - Sleep disorder [Unknown]
  - Renal pain [Unknown]
  - Headache [Unknown]
  - Product quality issue [Unknown]
  - Back pain [Unknown]
